FAERS Safety Report 9163084 (Version 2)
Quarter: 2013Q1

REPORT INFORMATION
  Report Type: Spontaneous
  Country: DE (occurrence: None)
  Receive Date: 20130227
  Receipt Date: 20130315
  Transmission Date: 20140127
  Serious: Yes (Other)
  Sender: FDA-Public Use
  Company Number: 220487

PATIENT
  Age: 63 Year
  Sex: Male
  Weight: 94 kg

DRUGS (2)
  1. VEHICLE BOAT BAG MEDICAL [Suspect]
     Indication: ACTINIC KERATOSIS
     Dosage: (1 IN 1 D), TOPICAL
     Route: 061
     Dates: start: 20121218, end: 20121220
  2. PICATO [Suspect]
     Dosage: 1 IN1D, TOPICAL
     Dates: start: 20121023, end: 20121025

REACTIONS (1)
  - Squamous cell carcinoma [None]
